FAERS Safety Report 6073773-2 (Version None)
Quarter: 2009Q1

REPORT INFORMATION
  Report Type: 
  Country: None (occurrence: None)
  Receive Date: 20090204
  Receipt Date: 20090204
  Transmission Date: 20090719
  Serious: Yes (Hospitalization)
  Sender: FDA-Public Use
  Company Number: None

PATIENT
  Sex: Male
  Weight: 83 kg

DRUGS (6)
  1. NEUPRO [Suspect]
     Indication: PARKINSON'S DISEASE
     Dosage: (4 MG QD), (6 MG QD), (8 MG QD)
     Dates: start: 20060718, end: 20060720
  2. NEUPRO [Suspect]
     Indication: PARKINSON'S DISEASE
     Dosage: (4 MG QD), (6 MG QD), (8 MG QD)
     Dates: start: 20060721, end: 20060815
  3. NEUPRO [Suspect]
     Indication: PARKINSON'S DISEASE
     Dosage: (4 MG QD), (6 MG QD), (8 MG QD)
     Dates: start: 20060816, end: 20070724
  4. AZILECT [Concomitant]
  5. ASPIRIN [Concomitant]
  6. SIMVASTATIN [Concomitant]

REACTIONS (2)
  - PHLEBECTOMY [None]
  - VARICOSE VEIN OPERATION [None]
